FAERS Safety Report 6571048-6 (Version None)
Quarter: 2010Q1

REPORT INFORMATION
  Report Type: 
  Country: None (occurrence: None)
  Receive Date: 20100203
  Receipt Date: 20100203
  Transmission Date: 20100710
  Serious: Yes (Life-Threatening, Other)
  Sender: FDA-Public Use
  Company Number: None

PATIENT
  Age: 32 Year
  Sex: Female
  Weight: 64.8644 kg

DRUGS (1)
  1. NORETHIDRONE ACETATE [Suspect]
     Indication: ENDOMETRIOSIS
     Dosage: 30 1 PER DAY PO
     Route: 048
     Dates: start: 20090126, end: 20100201

REACTIONS (4)
  - ASTHMA [None]
  - CONDITION AGGRAVATED [None]
  - COUGH [None]
  - DRUG EFFECT DECREASED [None]
